FAERS Safety Report 5413100-4 (Version None)
Quarter: 2007Q3

REPORT INFORMATION
  Report Type: 
  Country: None (occurrence: None)
  Receive Date: 20070813
  Receipt Date: 20070802
  Transmission Date: 20080115
  Serious: Yes (Hospitalization)
  Sender: FDA-Public Use
  Company Number: US-PFIZER INC-2007064124

PATIENT
  Age: 69 Year
  Sex: Female

DRUGS (10)
  1. GLIPIZIDE [Suspect]
     Indication: BLOOD GLUCOSE ABNORMAL
     Dosage: DAILY DOSE:5MG-FREQ:FREQUENCY: BID
  2. CARDIZEM [Suspect]
     Indication: BLOOD PRESSURE
     Dosage: DAILY DOSE:240MG
     Route: 065
  3. CLONIDINE [Suspect]
     Indication: BLOOD PRESSURE
     Dosage: DAILY DOSE:.1MG-FREQ:FREQUENCY: BID
     Route: 065
  4. AMIODARONE HCL [Suspect]
     Indication: ARRHYTHMIA
     Dosage: DAILY DOSE:200MG
     Route: 065
  5. WARFARIN SODIUM [Suspect]
     Dosage: DAILY DOSE:3MG-FREQ:FREQUENCY: OD
     Route: 048
     Dates: start: 20060310, end: 20070530
  6. LISINOPRIL [Suspect]
     Indication: BLOOD PRESSURE
     Dosage: DAILY DOSE:5MG
     Route: 065
  7. PROTONIX [Concomitant]
     Dosage: TEXT:UNKNOWN
     Route: 065
  8. VYTORIN [Concomitant]
     Dosage: TEXT:UNKNOWN
     Route: 065
  9. SYNTHROID [Concomitant]
     Dosage: TEXT:UNKNOWN
     Route: 065
  10. SPIRONOLACTONE [Concomitant]
     Dosage: FREQ:UNKNOWN
     Route: 065

REACTIONS (3)
  - HYPERKALAEMIA [None]
  - RENAL FAILURE ACUTE [None]
  - SYNCOPE [None]
